FAERS Safety Report 6295308-1 (Version None)
Quarter: 2009Q3

REPORT INFORMATION
  Report Type: 
  Country: None (occurrence: None)
  Receive Date: 20090729
  Receipt Date: 20090724
  Transmission Date: 20100115
  Serious: Yes (Death)
  Sender: FDA-Public Use
  Company Number: GXKR2009DE08420

PATIENT
  Age: 68 Year
  Sex: Female
  Weight: 53 kg

DRUGS (8)
  1. CLOZAPINE [Suspect]
     Dosage: 25 MG, ORAL
     Route: 048
  2. DOMPERIDONE (NGX) (DOMPERIDONE) UNKNOWN, 10MG [Suspect]
     Dosage: 10 MG, QD, ORAL
     Route: 048
  3. OMEPRAZOLE [Suspect]
     Dosage: 40 MG, QD
  4. PIPAMPERONE (NGX) (PIPAMPERONE) UNKNOWN, 40MG [Suspect]
     Dosage: 40 MG, QD, ORAL
     Route: 048
  5. VALPROIC ACID [Suspect]
     Dosage: 300 MG, BID, ORAL
  6. CARBIDOPA (CARBIDOPA) 200MG [Suspect]
     Dosage: 200 MG, QD, ORAL
     Route: 048
  7. RIVASTIGMINE (RIVASTIGMINE) 3MG [Suspect]
     Dosage: 3 MG, BID, ORAL
     Route: 048
  8. STALEVO 100 [Suspect]
     Dosage: 100 MG, 6QD, ORAL
     Route: 048

REACTIONS (1)
  - SUBILEUS [None]
